FAERS Safety Report 21574444 (Version 2)
Quarter: 2023Q1

REPORT INFORMATION
  Report Type: Spontaneous
  Country: JP (occurrence: JP)
  Receive Date: 20221109
  Receipt Date: 20230208
  Transmission Date: 20230418
  Serious: Yes (Other)
  Sender: FDA-Public Use
  Company Number: JP-ONO-2022JP030052

PATIENT
  Age: 63 Year

DRUGS (3)
  1. OPDIVO [Suspect]
     Active Substance: NIVOLUMAB
     Indication: Gastric cancer
     Dosage: 360 MG
     Route: 041
     Dates: start: 20220912
  2. TS-1 [Suspect]
     Active Substance: GIMERACIL\OTERACIL\TEGAFUR
     Indication: Gastric cancer
     Dosage: UNK
     Dates: start: 20220912
  3. OXALIPLATIN [Suspect]
     Active Substance: OXALIPLATIN
     Indication: Gastric cancer
     Dosage: UNK
     Dates: start: 20220912

REACTIONS (8)
  - Haematochezia [Unknown]
  - Pseudomonas test positive [Unknown]
  - White blood cell count increased [Unknown]
  - C-reactive protein increased [Unknown]
  - Enterocolitis [Not Recovered/Not Resolved]
  - Diarrhoea [Unknown]
  - Pyrexia [Unknown]
  - Colitis ulcerative [Unknown]

NARRATIVE: CASE EVENT DATE: 20221001
